FAERS Safety Report 7909277-9 (Version None)
Quarter: 2011Q4

REPORT INFORMATION
  Report Type: 
  Country: None (occurrence: None)
  Receive Date: 20111111
  Receipt Date: 20111102
  Transmission Date: 20120403
  Serious: Yes (Hospitalization)
  Sender: FDA-Public Use
  Company Number: US-BAYER-2011-064119

PATIENT
  Age: 20 Year
  Sex: Female
  Weight: 92.971 kg

DRUGS (5)
  1. YAZ [Suspect]
     Indication: CONTRACEPTION
     Dosage: UNK
     Dates: start: 20061001, end: 20100101
  2. CRYSELLE [Concomitant]
     Indication: CONTRACEPTION
     Dosage: UNK
     Dates: start: 20100101, end: 20100801
  3. PERCOCET [Concomitant]
  4. IBUPROFEN (ADVIL) [Concomitant]
     Indication: PAIN
     Route: 048
  5. GARDASIL [Concomitant]
     Dosage: UNK
     Dates: start: 20070401, end: 20071001

REACTIONS (4)
  - PAIN [None]
  - CHOLECYSTITIS [None]
  - GALLBLADDER DISORDER [None]
  - INJURY [None]
